FAERS Safety Report 20742002 (Version 3)
Quarter: 2022Q2

REPORT INFORMATION
  Report Type: Spontaneous
  Country: BR (occurrence: BR)
  Receive Date: 20220423
  Receipt Date: 20220616
  Transmission Date: 20220720
  Serious: Yes (Other)
  Sender: FDA-Public Use
  Company Number: BR-TAKEDA-2022TUS026029

PATIENT

DRUGS (1)
  1. LISDEXAMFETAMINE DIMESYLATE [Suspect]
     Active Substance: LISDEXAMFETAMINE DIMESYLATE
     Indication: Product used for unknown indication
     Route: 065

REACTIONS (7)
  - Loss of consciousness [Unknown]
  - Ocular discomfort [Unknown]
  - Abnormal behaviour [Unknown]
  - Wrong technique in product usage process [Unknown]
  - Insomnia [Unknown]
  - Somnolence [Unknown]
  - Unevaluable event [Unknown]
